FAERS Safety Report 6229995-0 (Version None)
Quarter: 2009Q2

REPORT INFORMATION
  Report Type: 
  Country: None (occurrence: None)
  Receive Date: 20090615
  Receipt Date: 20090601
  Transmission Date: 20091009
  Serious: Yes (Other)
  Sender: FDA-Public Use
  Company Number: GB-MYLANLABS-2009S1009635

PATIENT
  Sex: Female

DRUGS (3)
  1. METFORMIN HYDROCHLORIDE [Suspect]
     Indication: DRUG USE FOR UNKNOWN INDICATION
  2. PIOGLITAZONE [Suspect]
     Indication: DRUG USE FOR UNKNOWN INDICATION
  3. STARLIX [Suspect]
     Indication: DIABETES MELLITUS

REACTIONS (1)
  - GLYCOSYLATED HAEMOGLOBIN INCREASED [None]
